FAERS Safety Report 10855505 (Version 1)
Quarter: 2015Q1

REPORT INFORMATION
  Report Type: Spontaneous
  Country: US (occurrence: None)
  Receive Date: 20150218
  Receipt Date: 20150218
  Transmission Date: 20150721
  Serious: Yes (Other)
  Sender: FDA-Public Use
  Company Number: None

PATIENT
  Age: 63 Year
  Sex: Female
  Weight: 89.81 kg

DRUGS (2)
  1. CIPROFLOXACIN. [Suspect]
     Active Substance: CIPROFLOXACIN
     Indication: LYME DISEASE
     Route: 048
     Dates: start: 20141121, end: 20150201
  2. CIPROFLOXACIN. [Suspect]
     Active Substance: CIPROFLOXACIN
     Indication: BABESIOSIS
     Route: 048
     Dates: start: 20141121, end: 20150201

REACTIONS (7)
  - Muscle spasms [None]
  - Pain [None]
  - C-reactive protein increased [None]
  - Muscle twitching [None]
  - Costochondritis [None]
  - Paraesthesia [None]
  - Blood lactate dehydrogenase increased [None]

NARRATIVE: CASE EVENT DATE: 20150201
